FAERS Safety Report 9336812 (Version 1)
Quarter: 2013Q2

REPORT INFORMATION
  Report Type: Spontaneous
  Country: US (occurrence: US)
  Receive Date: 20130607
  Receipt Date: 20130607
  Transmission Date: 20140414
  Serious: No
  Sender: FDA-Public Use
  Company Number: US-BAYER-2013-068815

PATIENT
  Age: 17 Year
  Sex: Female

DRUGS (1)
  1. ALEVE CAPLET [Suspect]
     Route: 048

REACTIONS (1)
  - Inappropriate schedule of drug administration [None]
